FAERS Safety Report 22097867 (Version 5)
Quarter: 2024Q3

REPORT INFORMATION
  Report Type: Spontaneous
  Country: BR (occurrence: BR)
  Receive Date: 20230315
  Receipt Date: 20240731
  Transmission Date: 20241016
  Serious: Yes (Other)
  Sender: GLAXOSMITHKLINE
  Company Number: BR-GLAXOSMITHKLINE-BR2016GSK089178

PATIENT

DRUGS (8)
  1. BENLYSTA [Suspect]
     Active Substance: BELIMUMAB
     Indication: Systemic lupus erythematosus
     Dosage: 520 MG
     Route: 042
     Dates: start: 20150605
  2. BENLYSTA [Suspect]
     Active Substance: BELIMUMAB
     Dosage: 120 MG, Q4W
     Route: 042
  3. BENLYSTA [Suspect]
     Active Substance: BELIMUMAB
     Dosage: 400 MG, Q4W
     Route: 042
  4. BENLYSTA [Suspect]
     Active Substance: BELIMUMAB
     Dosage: UNK UNK, Q4W
     Route: 042
  5. AZATHIOPRINE [Concomitant]
     Active Substance: AZATHIOPRINE
     Indication: Product used for unknown indication
     Dosage: 100 MG
  6. CALCIUM\VITAMIN D [Concomitant]
     Active Substance: CALCIUM\VITAMIN D
     Indication: Product used for unknown indication
     Dosage: UNK
  7. HYDROXYCHLOROQUINE SULFATE [Concomitant]
     Active Substance: HYDROXYCHLOROQUINE SULFATE
     Indication: Product used for unknown indication
     Dosage: 400 MG
  8. PREDNISONE [Concomitant]
     Active Substance: PREDNISONE
     Indication: Product used for unknown indication
     Dosage: 10 MG

REACTIONS (19)
  - Syncope [Recovered/Resolved]
  - Weight increased [Recovered/Resolved]
  - Skin discolouration [Unknown]
  - Weight decreased [Unknown]
  - Palate injury [Unknown]
  - Pain [Unknown]
  - Cough [Recovered/Resolved]
  - Oropharyngeal pain [Unknown]
  - Chest discomfort [Unknown]
  - Coronavirus infection [Unknown]
  - Malaise [Recovered/Resolved]
  - Cervix disorder [Unknown]
  - Product availability issue [Unknown]
  - Off label use [Unknown]
  - Prescribed underdose [Unknown]
  - Inappropriate schedule of product administration [Unknown]
  - Product dose omission issue [Unknown]
  - Circumstance or information capable of leading to medication error [Unknown]
  - Product supply issue [Unknown]

NARRATIVE: CASE EVENT DATE: 20160620
